FAERS Safety Report 9056084 (Version 5)
Quarter: 2013Q3

REPORT INFORMATION
  Report Type: Report from Study
  Country: DE (occurrence: DE)
  Receive Date: 20130205
  Receipt Date: 20130731
  Transmission Date: 20140515
  Serious: Yes (Hospitalization, Other)
  Sender: FDA-Public Use
  Company Number: PHHY2013DE007606

PATIENT
  Sex: Female
  Weight: 128 kg

DRUGS (13)
  1. AFINITOR [Suspect]
     Indication: BREAST CANCER METASTATIC
     Dosage: 10 MG, QD
     Route: 048
     Dates: start: 20130110, end: 20130120
  2. AFINITOR [Suspect]
     Dosage: 10 MG, QD
     Route: 048
     Dates: start: 20130131, end: 20130320
  3. EXEMESTANE [Concomitant]
     Indication: BREAST CANCER METASTATIC
     Dosage: 25 MG, QD
     Route: 048
     Dates: start: 20130110, end: 20130304
  4. BISPHOSPHONATES [Concomitant]
  5. AMLOBESILAT [Concomitant]
     Dosage: 5 MG, BID
     Dates: start: 19900102
  6. ATMADISC [Concomitant]
     Dosage: 1 DF, QD
     Dates: start: 19900102
  7. CAPROS [Concomitant]
     Dosage: 10 MG, QD
     Dates: start: 19900102
  8. IBU [Concomitant]
     Dosage: 600 MG, PRN
     Dates: start: 19900102
  9. PANTOZOL [Concomitant]
     Dosage: 20 MG, QD
     Dates: start: 19900102
  10. TARGIN [Concomitant]
     Dosage: 1 DF, BID
     Dates: start: 19900102
  11. XELODA [Concomitant]
     Dosage: UNK
     Dates: start: 201303
  12. THYRONAJOD [Concomitant]
     Dosage: 75 MG, QD
     Dates: start: 19900102
  13. L-THYROXIN [Concomitant]
     Dosage: 100 UG, QD
     Dates: start: 19900102

REACTIONS (4)
  - Pyrexia [Recovered/Resolved]
  - Diarrhoea [Recovered/Resolved]
  - Vomiting [Recovered/Resolved]
  - C-reactive protein increased [Unknown]
